FAERS Safety Report 5284866-1 (Version None)
Quarter: 2007Q1

REPORT INFORMATION
  Report Type: 
  Country: None (occurrence: None)
  Receive Date: 20070328
  Receipt Date: 20070315
  Transmission Date: 20070707
  Serious: Yes (Hospitalization)
  Sender: FDA-Public Use
  Company Number: S07-GER-01302-01

PATIENT
  Age: 32 Year
  Sex: Female

DRUGS (6)
  1. CITALOPRAM HYDROBROMIDE [Suspect]
     Indication: DEPRESSION
     Dosage: 40 MG QD PO
     Route: 048
     Dates: start: 20050913, end: 20051009
  2. VITAMIN B-12 (CYANOCOBALAMINE) [Concomitant]
  3. MIRTAZAPINE [Concomitant]
  4. ISOTRETINOIN [Concomitant]
  5. ROCEPHIN [Concomitant]
  6. BELARA [Concomitant]

REACTIONS (2)
  - IMMUNE SYSTEM DISORDER [None]
  - THROMBOCYTOPENIA [None]
